FAERS Safety Report 4558727-7 (Version None)
Quarter: 2005Q1

REPORT INFORMATION
  Report Type: 
  Country: None (occurrence: None)
  Receive Date: 20050119
  Receipt Date: 20050112
  Transmission Date: 20050727
  Serious: Yes (Other)
  Sender: FDA-Public Use
  Company Number: 200510191BCC

PATIENT
  Age: 51 Year
  Sex: Male
  Weight: 81.6475 kg

DRUGS (1)
  1. E.S. BAYER BACK + BODY PAIN [Suspect]
     Indication: PAIN IN EXTREMITY
     Dosage: 1000/65 MG, QD, ORAL
     Route: 048
     Dates: start: 20050110, end: 20050112

REACTIONS (1)
  - BLOOD PRESSURE INCREASED [None]
